FAERS Safety Report 13405445 (Version 4)
Quarter: 2017Q4

REPORT INFORMATION
  Report Type: Spontaneous
  Country: US (occurrence: US)
  Receive Date: 20170405
  Receipt Date: 20171207
  Transmission Date: 20180320
  Serious: No
  Sender: FDA-Public Use
  Company Number: US-PFIZER INC-2017011873

PATIENT
  Age: 66 Year
  Sex: Female

DRUGS (49)
  1. FENTANYL. [Concomitant]
     Active Substance: FENTANYL
     Indication: HERPES ZOSTER
     Dosage: UNK (25 MCG/HR TRANSDERMAL PATCH 72 HOUR (APPLY 1 PATCH EVERY 3 DAYS))
     Route: 062
     Dates: start: 20160211
  2. METFORMIN HCL [Concomitant]
     Active Substance: METFORMIN HYDROCHLORIDE
     Dosage: 1000 MG, 2X/DAY
     Route: 048
     Dates: start: 20070814
  3. METFORMIN HCL [Concomitant]
     Active Substance: METFORMIN HYDROCHLORIDE
     Dosage: 1000 MG, UNK
  4. FASLODEX [Concomitant]
     Active Substance: FULVESTRANT
     Dosage: UNK
  5. BRINZOLAMIDE [Concomitant]
     Active Substance: BRINZOLAMIDE
     Dosage: 1 GTT, 2X/DAY [ADMINISTER 1 DROP INTO BOTH EYES 2 (TWO) TIMES A DAY]
     Route: 047
  6. TACROLIMUS. [Concomitant]
     Active Substance: TACROLIMUS
     Dosage: UNK
  7. BIOTIN [Concomitant]
     Active Substance: BIOTIN
     Dosage: 5000 UG, 2X/DAY
     Route: 048
     Dates: start: 2015
  8. BIOTIN [Concomitant]
     Active Substance: BIOTIN
     Dosage: UNK
     Dates: start: 2015
  9. ENALAPRIL MALEATE. [Concomitant]
     Active Substance: ENALAPRIL MALEATE
     Dosage: 10 MG, UNK
     Route: 048
  10. GLYBURIDE. [Concomitant]
     Active Substance: GLYBURIDE
     Dosage: 5 MG, 2X/DAY
     Route: 048
     Dates: start: 20070815
  11. KETOCONAZOLE. [Concomitant]
     Active Substance: KETOCONAZOLE
     Dosage: UNK, AS NEEDED
     Dates: start: 2016
  12. ZOFRAN [Concomitant]
     Active Substance: ONDANSETRON HYDROCHLORIDE
     Indication: NAUSEA
     Dosage: 8 MG, AS NEEDED (TAKE 1 TABLET EVERY 8 HOURS AS NEEDED)
     Route: 048
     Dates: start: 20161013
  13. ZOFRAN [Concomitant]
     Active Substance: ONDANSETRON HYDROCHLORIDE
     Dosage: UNK UNK, AS NEEDED
     Dates: start: 2015
  14. PENICILLIN V POTASSIUM. [Concomitant]
     Active Substance: PENICILLIN V POTASSIUM
     Dosage: 500 MG, 4X/DAY (TAKE 1 TABLET BY MOUTH FOUR TIMES A DAY UNTIL FINISHED.)
     Route: 048
  15. MULTIVITAMINS /00116001/ [Concomitant]
     Active Substance: VITAMINS
     Dosage: 1 CAPSULE BY MOUTH DAILY
     Route: 048
  16. AZOPT [Concomitant]
     Active Substance: BRINZOLAMIDE
     Dosage: 2 GTT, 2X/DAY; (INSTILL 1 DROP INTO BOTH EYES TWICE DAILY)
     Route: 047
  17. VALIUM [Concomitant]
     Active Substance: DIAZEPAM
     Dosage: 5 MG, UNK (TAKE 1 TABLET 1 HOUR PRIOR TO TEST AND MAY REPEAT X 1 AT TIME OF TEST)
     Route: 048
     Dates: start: 20160531
  18. FOLIC ACID. [Concomitant]
     Active Substance: FOLIC ACID
     Dosage: 1 MG, DAILY
     Route: 048
  19. DOXEPIN HCL [Concomitant]
     Active Substance: DOXEPIN HYDROCHLORIDE
     Dosage: 25 MG, UNK
  20. FOLIC ACID. [Concomitant]
     Active Substance: FOLIC ACID
     Dosage: 4 MG, 1X/DAY
     Route: 048
  21. DUKES MOUTHWASH [Concomitant]
     Dosage: UNK, 1X/DAY (USED 1X)
     Dates: start: 201610
  22. VITAMIN D [Concomitant]
     Active Substance: CHOLECALCIFEROL
     Dosage: 1000 IU, DAILY
  23. PIOGLITAZONE HCL [Concomitant]
     Active Substance: PIOGLITAZONE
     Dosage: 30 MG, UNK
  24. IBRANCE [Suspect]
     Active Substance: PALBOCICLIB
     Indication: BREAST CANCER METASTATIC
     Dosage: 100 MG, DAILY
     Route: 048
     Dates: start: 20161007
  25. IBRANCE [Suspect]
     Active Substance: PALBOCICLIB
     Indication: BONE CANCER
     Dosage: 75 MG, DAILY ((1 CAPSULE BY MOUTH ONCE DAILY FOR 21 DAYS THEN OFF FOR 7 DAYS THEN REPEAT)
     Route: 048
  26. VALIUM [Concomitant]
     Active Substance: DIAZEPAM
     Dosage: UNK (ONLY USED 1X)
     Dates: start: 201602
  27. GABAPENTIN. [Concomitant]
     Active Substance: GABAPENTIN
     Dosage: 300 MG, 1X/DAY (TAKE 1 CAPSULE BEDTIME)
     Dates: start: 20160219
  28. JANUVIA [Concomitant]
     Active Substance: SITAGLIPTIN PHOSPHATE
     Dosage: UNK
     Dates: start: 201305
  29. KETOCONAZOLE. [Concomitant]
     Active Substance: KETOCONAZOLE
     Dosage: UNK (LATHER ONTO AFFECTED AREA(S) THREE TIMES A WEEK, LEAVE FOR 10 MINUTES, AND RINSE)
     Dates: start: 20160707
  30. DUKES MOUTHWASH [Concomitant]
     Indication: STOMATITIS
     Dosage: UNK UNK, 4X/DAY (TAKE 1-2 TEASPOONS, SWISH, GARGLE, SPIT OR SWALLOW UPTO 4 TIMES DAILY)
     Dates: start: 20161202
  31. METFORMIN HCL [Concomitant]
     Active Substance: METFORMIN HYDROCHLORIDE
     Dosage: UNK
     Dates: start: 1997
  32. GLYBURIDE. [Concomitant]
     Active Substance: GLYBURIDE
     Dosage: UNK
     Dates: start: 2003
  33. JANUVIA [Concomitant]
     Active Substance: SITAGLIPTIN PHOSPHATE
     Dosage: 100 MG, DAILY
     Route: 048
     Dates: start: 20140415
  34. METOPROLOL SUCCINATE. [Concomitant]
     Active Substance: METOPROLOL SUCCINATE
     Dosage: 25 MG, DAILY
     Route: 048
     Dates: start: 20131101
  35. VITAMIN D [Concomitant]
     Active Substance: CHOLECALCIFEROL
     Dosage: UNK
     Dates: start: 2015
  36. GLIPIZIDE. [Concomitant]
     Active Substance: GLIPIZIDE
     Dosage: 5 MG, UNK
  37. ALPRAZOLAM. [Concomitant]
     Active Substance: ALPRAZOLAM
     Indication: POSITRON EMISSION TOMOGRAM ABNORMAL
     Dosage: 0.25 MG, AS NEEDED (TAKE 0.25 MG BY MOUTH 2 (TWO) TIMES A DAY. 1 TABLET TWICE DAILY AS NEEDED)
     Route: 048
     Dates: start: 20160212
  38. CALTRATE 600+D [Concomitant]
     Dosage: 2 DF, DAILY (CALCIUM CARBONATE: 600 MG, COLECALCIFEROL: 800 UNIT)
     Route: 048
     Dates: start: 2015
  39. CALTRATE 600+D [Concomitant]
     Dosage: UNK
     Dates: start: 2015
  40. ENALAPRIL MALEATE. [Concomitant]
     Active Substance: ENALAPRIL MALEATE
     Dosage: UNK
  41. FENTANYL. [Concomitant]
     Active Substance: FENTANYL
     Dosage: UNK, 3X/DAY
     Dates: start: 2016
  42. FOLIC ACID. [Concomitant]
     Active Substance: FOLIC ACID
     Dosage: UNK
     Dates: start: 2015
  43. GUAIFENESIN/CODEINE [Concomitant]
     Active Substance: CODEINE PHOSPHATE\GUAIFENESIN
     Indication: COUGH
     Dosage: 5 ML, AS NEEDED (CODEINE PHOSPHATE: 10, GUAIFENESIN: 100MG) (TAKE 5 ML EVERY 4-6 HOURS AS NEEDED)
     Route: 048
     Dates: start: 20161107
  44. METOPROLOL SUCCINATE. [Concomitant]
     Active Substance: METOPROLOL SUCCINATE
     Dosage: UNK
     Dates: start: 1999
  45. CHOLECALCIFEROL [Concomitant]
     Active Substance: CHOLECALCIFEROL
     Dosage: 1000 IU, DAILY
     Route: 048
  46. CLOBETASOL [Concomitant]
     Active Substance: CLOBETASOL
     Dosage: UNK, 1X/DAY (APPLY TOPICALLY. APPLY SPARINGLY TO AFFECTED AREAS ONCE DAILY)
     Route: 061
  47. ONDANSETRON HCL [Concomitant]
     Active Substance: ONDANSETRON HYDROCHLORIDE
     Indication: NAUSEA
     Dosage: 8 MG, AS NEEDED (TAKE 1 TABLET BY MOUTH EVERY 8 HOURS IF NEEDED FOR NAUSEA)
     Route: 048
  48. ENALAPRIL MALEATE. [Concomitant]
     Active Substance: ENALAPRIL MALEATE
     Dosage: 10 MG, 2X/DAY
     Route: 048
  49. HYDROCHLOROTHIAZIDE. [Concomitant]
     Active Substance: HYDROCHLOROTHIAZIDE
     Dosage: 25 MG, DAILY
     Route: 048
     Dates: start: 20150811

REACTIONS (3)
  - Dry skin [Not Recovered/Not Resolved]
  - Pruritus [Not Recovered/Not Resolved]
  - Eczema [Not Recovered/Not Resolved]

NARRATIVE: CASE EVENT DATE: 201703
